FAERS Safety Report 7688215 (Version 2)
Quarter: 2013Q4

REPORT INFORMATION
  Report Type: Spontaneous
  Country: US (occurrence: US)
  Receive Date: 20101201
  Receipt Date: 20131031
  Transmission Date: 20140711
  Serious: Yes (Hospitalization)
  Sender: FDA-Public Use
  Company Number: US-RANBAXY-2010US-39505

PATIENT
  Age: 24 Year
  Sex: Female

DRUGS (8)
  1. AMIODARONE [Suspect]
     Indication: VENTRICULAR FIBRILLATION
     Dosage: 400 MG, QD
     Route: 065
  2. CILOSTAZOL [Suspect]
     Indication: VENTRICULAR TACHYCARDIA
     Dosage: 100 MG, BID
     Route: 065
  3. METOPROLOL [Suspect]
     Indication: VENTRICULAR FIBRILLATION
     Dosage: 25 MG, BID
     Route: 065
  4. AMIODARONE [Suspect]
     Indication: VENTRICULAR FIBRILLATION
     Dosage: UNK
     Route: 042
  5. ESMOLOL [Suspect]
     Indication: VENTRICULAR TACHYCARDIA
     Dosage: 50 MCG/KG/MIN
     Route: 042
  6. ISOPROTERENOL [Suspect]
     Indication: VENTRICULAR TACHYCARDIA
     Dosage: UNK
     Route: 065
  7. MAGNESIUM [Suspect]
     Indication: VENTRICULAR TACHYCARDIA
     Dosage: 2 G, Q1H
     Route: 042
  8. QUINAGLUTE [Suspect]
     Indication: VENTRICULAR TACHYCARDIA
     Dosage: 324 MG, TID
     Route: 065

REACTIONS (3)
  - Torsade de pointes [Recovered/Resolved]
  - Premature delivery [Recovered/Resolved]
  - Exposure during pregnancy [Recovered/Resolved]
